FAERS Safety Report 5112765-4 (Version None)
Quarter: 2006Q3

REPORT INFORMATION
  Report Type: 
  Country: None (occurrence: None)
  Receive Date: 20060920
  Receipt Date: 20060920
  Transmission Date: 20061208
  Serious: Yes (Hospitalization)
  Sender: FDA-Public Use
  Company Number: None

PATIENT
  Age: 62 Year
  Sex: Male
  Weight: 57.6068 kg

DRUGS (26)
  1. CIPROFLOXACIN [Suspect]
     Indication: DEVICE RELATED INFECTION
     Dosage: 250 MG DAILY PO
     Route: 048
     Dates: start: 20050910, end: 20050916
  2. ASPIRIN [Concomitant]
  3. BACTRIM DS [Concomitant]
  4. BENADRYL [Concomitant]
  5. CLONIDINE [Concomitant]
  6. COLACE [Concomitant]
  7. DIOVAN [Concomitant]
  8. EMTRIVA [Concomitant]
  9. FOLIC ACID [Concomitant]
  10. IMDUR [Concomitant]
  11. LOPRESSOR [Concomitant]
  12. NEPHROVITE [Concomitant]
  13. NITROGLYCERIN [Concomitant]
  14. NORVASC [Concomitant]
  15. NORVIR [Concomitant]
  16. OXYCODONE HCL [Concomitant]
  17. PRILOSEC [Concomitant]
  18. REYATAZ [Concomitant]
  19. RENAGEL [Concomitant]
  20. SUSTIVA [Concomitant]
  21. TYLENOL [Concomitant]
  22. VIREAD [Concomitant]
  23. ACYCLOVIR [Concomitant]
  24. LOPERAMIDE [Concomitant]
  25. SENNA [Concomitant]
  26. COUMADIN [Concomitant]

REACTIONS (3)
  - ABNORMAL SENSATION IN EYE [None]
  - BLINDNESS [None]
  - LOSS OF CONSCIOUSNESS [None]
